FAERS Safety Report 7705460-6 (Version None)
Quarter: 2011Q3

REPORT INFORMATION
  Report Type: 
  Country: None (occurrence: None)
  Receive Date: 20110818
  Receipt Date: 20110802
  Transmission Date: 20111222
  Serious: Yes (Hospitalization)
  Sender: FDA-Public Use
  Company Number: INT_00025_2011

PATIENT
  Sex: Female

DRUGS (17)
  1. ALBUTEROL SULFATE [Concomitant]
  2. CITALOPRAM [Concomitant]
  3. CEFEPIME [Suspect]
     Indication: PNEUMONIA
     Dosage: INTRAVENOUS (NOT OTHERWISE SPECIFIED)
     Route: 036
     Dates: start: 20101101
  4. VANCOMYCIN HCL [Concomitant]
  5. FLUTICASONE PROPIONATE [Concomitant]
  6. SODIUM CHLORIDE [Concomitant]
  7. TRAZODONE HYDROCHLORIDE [Concomitant]
  8. PIPERACILLIN AND TAZOBACTAM [Concomitant]
  9. ADVAIR DISKUS 100/50 [Concomitant]
  10. PANCRELIPASE [Concomitant]
  11. AZITHROMYCIN [Concomitant]
  12. TOBRAMYCIN [Concomitant]
  13. HYPERTONIC SALINE SOLUTION [Concomitant]
  14. ACETAMINOPHEN [Concomitant]
  15. PULMOZYME [Concomitant]
  16. HEPARIN [Concomitant]
  17. CIPROFLOXACIN [Concomitant]

REACTIONS (4)
  - TYPE IV HYPERSENSITIVITY REACTION [None]
  - ASPARTATE AMINOTRANSFERASE INCREASED [None]
  - BLOOD ALKALINE PHOSPHATASE INCREASED [None]
  - ALANINE AMINOTRANSFERASE INCREASED [None]
